FAERS Safety Report 8468476-0 (Version None)
Quarter: 2012Q2

REPORT INFORMATION
  Report Type: 
  Country: None (occurrence: None)
  Receive Date: 20120626
  Receipt Date: 20120618
  Transmission Date: 20120825
  Serious: Yes (Hospitalization, Other)
  Sender: FDA-Public Use
  Company Number: DE-JNJFOC-20120610105

PATIENT
  Sex: Male
  Weight: 108 kg

DRUGS (6)
  1. AMLODIPINE [Concomitant]
     Route: 048
  2. GABAPENTIN [Concomitant]
     Route: 048
  3. RAMIPRIL [Concomitant]
  4. XARELTO [Suspect]
     Indication: THROMBOSIS PROPHYLAXIS
     Route: 048
  5. XARELTO [Suspect]
     Indication: KNEE ARTHROPLASTY
     Route: 048
  6. LEVOTHYROXINE SODIUM [Concomitant]
     Route: 048

REACTIONS (3)
  - PROTHROMBIN TIME PROLONGED [None]
  - HAEMARTHROSIS [None]
  - HAEMATOMA INFECTION [None]
